FAERS Safety Report 8874196 (Version 1)
Quarter: 2012Q4

REPORT INFORMATION
  Report Type: 
  Country: US (occurrence: US)
  Receive Date: 20121030
  Receipt Date: 20121030
  Transmission Date: 20130627
  Serious: Yes (Other)
  Sender: FDA-Public Use
  Company Number: PHHY2012US094822

PATIENT
  Age: 54 Year
  Sex: Female

DRUGS (2)
  1. BISACODYL [Suspect]
     Indication: CONSTIPATION
  2. ESTRADIOL [Suspect]
     Dosage: 0.5 mg/day
     Route: 048

REACTIONS (5)
  - Colitis ischaemic [Recovered/Resolved]
  - Abdominal pain [Recovered/Resolved]
  - Diarrhoea [Recovered/Resolved]
  - Haematochezia [Recovered/Resolved]
  - Leukocytosis [Unknown]
